FAERS Safety Report 5995467-1 (Version None)
Quarter: 2008Q4

REPORT INFORMATION
  Report Type: 
  Country: None (occurrence: None)
  Receive Date: 20081212
  Receipt Date: 20081112
  Transmission Date: 20090506
  Serious: No
  Sender: FDA-Public Use
  Company Number: US-ABBOTT-08P-163-0479043-00

PATIENT
  Sex: Female
  Weight: 106.24 kg

DRUGS (1)
  1. HUMIRA [Suspect]
     Indication: PSORIATIC ARTHROPATHY
     Route: 058
     Dates: start: 20070828, end: 20080219

REACTIONS (6)
  - FLANK PAIN [None]
  - GLOMERULONEPHRITIS MEMBRANOUS [None]
  - HAEMATURIA [None]
  - PERIORBITAL OEDEMA [None]
  - PROTEINURIA [None]
  - SINUSITIS [None]
